FAERS Safety Report 24736199 (Version 1)
Quarter: 2024Q4

REPORT INFORMATION
  Report Type: Spontaneous
  Country: IN (occurrence: IN)
  Receive Date: 20241216
  Receipt Date: 20241216
  Transmission Date: 20250114
  Serious: Yes (Other)
  Sender: ROCHE
  Company Number: IN-ROCHE-10000099189

PATIENT
  Age: 33 Year
  Sex: Female
  Weight: 76.9 kg

DRUGS (1)
  1. TECENTRIQ [Suspect]
     Active Substance: ATEZOLIZUMAB
     Indication: Cervix carcinoma
     Route: 042
     Dates: start: 20240425

REACTIONS (5)
  - Haemoglobin decreased [Unknown]
  - Lymphadenopathy [Unknown]
  - Vulvovaginal pruritus [Unknown]
  - Pancytopenia [Unknown]
  - Leukopenia [Unknown]

NARRATIVE: CASE EVENT DATE: 20240805
